FAERS Safety Report 4591369-6 (Version None)
Quarter: 2005Q1

REPORT INFORMATION
  Report Type: 
  Country: None (occurrence: None)
  Receive Date: 20050222
  Receipt Date: 20050222
  Transmission Date: 20050727
  Serious: Yes (Disabling)
  Sender: FDA-Public Use
  Company Number: None

PATIENT
  Sex: Male
  Weight: 3.1752 kg

DRUGS (1)
  1. RHOGAM [Suspect]
     Dates: start: 19860301

REACTIONS (6)
  - DRUG EXPOSURE DURING PREGNANCY [None]
  - HAIR METAL TEST ABNORMAL [None]
  - LENNOX-GASTAUT SYNDROME [None]
  - MICROCEPHALY [None]
  - SALIVARY HYPERSECRETION [None]
  - SPEECH DISORDER [None]
